FAERS Safety Report 16550744 (Version 1)
Quarter: 2019Q3

REPORT INFORMATION
  Report Type: Spontaneous
  Country: US (occurrence: US)
  Receive Date: 20190710
  Receipt Date: 20190710
  Transmission Date: 20191004
  Serious: Yes (Hospitalization, Other)
  Sender: FDA-Public Use
  Company Number: US-HIKMA PHARMACEUTICALS USA INC.-US-H14001-19-45948

PATIENT
  Age: 28 Year
  Sex: Female

DRUGS (10)
  1. LIDOCAINE. [Suspect]
     Active Substance: LIDOCAINE
     Indication: CANCER PAIN
     Route: 041
  2. METHADONE [Suspect]
     Active Substance: METHADONE HYDROCHLORIDE
     Indication: CANCER PAIN
  3. KETAMINE [Suspect]
     Active Substance: KETAMINE
     Indication: CANCER PAIN
     Route: 065
  4. DEXAMETHASONE. [Concomitant]
     Active Substance: DEXAMETHASONE
     Indication: CANCER PAIN
     Route: 065
  5. DEXAMETHASONE. [Concomitant]
     Active Substance: DEXAMETHASONE
     Indication: CANCER PAIN
  6. HYDROMORPHONE [Suspect]
     Active Substance: HYDROMORPHONE
     Indication: CANCER PAIN
  7. MORPHINE [Suspect]
     Active Substance: MORPHINE
     Indication: CANCER PAIN
     Route: 065
  8. METHADONE [Suspect]
     Active Substance: METHADONE HYDROCHLORIDE
     Indication: CANCER PAIN
     Route: 065
  9. KETOROLAC [Concomitant]
     Active Substance: KETOROLAC TROMETHAMINE
     Indication: CANCER PAIN
     Route: 065
  10. MORPHINE [Suspect]
     Active Substance: MORPHINE
     Indication: CANCER PAIN

REACTIONS (8)
  - Dissociative disorder [Unknown]
  - Off label use [Unknown]
  - Confusional state [Unknown]
  - Delirium [Recovered/Resolved]
  - Diplopia [Unknown]
  - Anxiety [Unknown]
  - Nightmare [Unknown]
  - Drug ineffective [Not Recovered/Not Resolved]
